FAERS Safety Report 6682926-1 (Version None)
Quarter: 2010Q2

REPORT INFORMATION
  Report Type: 
  Country: None (occurrence: None)
  Receive Date: 20100415
  Receipt Date: 20100413
  Transmission Date: 20101027
  Serious: Yes (Death, Hospitalization)
  Sender: FDA-Public Use
  Company Number: Z0000779A

PATIENT
  Age: 62 Year
  Sex: Female
  Weight: 71.2 kg

DRUGS (2)
  1. TOPOTECAN [Suspect]
     Dosage: 2.3MGM2 CYCLIC
     Route: 048
     Dates: start: 20081110, end: 20090320
  2. BEVACIZUMAB [Suspect]
     Dosage: 15MGK CYCLIC
     Route: 042
     Dates: start: 20081110, end: 20090316

REACTIONS (2)
  - PNEUMONIA [None]
  - RESPIRATORY FAILURE [None]
